FAERS Safety Report 7479881-3 (Version None)
Quarter: 2011Q2

REPORT INFORMATION
  Report Type: 
  Country: None (occurrence: None)
  Receive Date: 20110515
  Receipt Date: 20100413
  Transmission Date: 20111010
  Serious: No
  Sender: FDA-Public Use
  Company Number: US-NOVEN-ALL1-2010-02207

PATIENT

DRUGS (1)
  1. DAYTRANA [Suspect]
     Dosage: 30 MG, UNKNOWN
     Route: 062
     Dates: start: 20080101

REACTIONS (5)
  - AGGRESSION [None]
  - DISTURBANCE IN ATTENTION [None]
  - DECREASED APPETITE [None]
  - GENERAL SYMPTOM [None]
  - ANGER [None]
